FAERS Safety Report 4978469-3 (Version None)
Quarter: 2006Q1

REPORT INFORMATION
  Report Type: 
  Country: None (occurrence: None)
  Receive Date: 20060227
  Receipt Date: 20050809
  Transmission Date: 20060701
  Serious: Yes (Life-Threatening, Hospitalization, Other)
  Sender: FDA-Public Use
  Company Number: WAES 0508USA01767

PATIENT
  Age: 52 Year
  Sex: Female
  Weight: 74.3899 kg

DRUGS (10)
  1. ZOCOR [Suspect]
     Indication: BLOOD CHOLESTEROL INCREASED
     Dosage: 20 MG/DAILY/PO
     Route: 048
     Dates: start: 20041203, end: 20050331
  2. ZOCOR [Suspect]
     Indication: DYSLIPIDAEMIA
     Dosage: 20 MG/DAILY/PO
     Route: 048
     Dates: start: 20041203, end: 20050331
  3. ARAVA [Concomitant]
  4. CELEBREX [Concomitant]
  5. LOZOL [Concomitant]
  6. PRINIVIL [Concomitant]
  7. REMICADE [Concomitant]
  8. SALAGEN [Concomitant]
  9. AMITRIPTYLINE HYDROCHLORIDE [Concomitant]
  10. VERAPAMIL [Concomitant]

REACTIONS (1)
  - RHABDOMYOLYSIS [None]
